FAERS Safety Report 11821988 (Version 1)
Quarter: 2015Q4

REPORT INFORMATION
  Report Type: Other
  Country: US (occurrence: US)
  Receive Date: 20151210
  Receipt Date: 20151210
  Transmission Date: 20160305
  Serious: Yes (Hospitalization)
  Sender: FDA-Public Use
  Company Number: US-ENDO PHARMACEUTICALS INC-2015-004593

PATIENT
  Age: 31 Year
  Sex: Male

DRUGS (4)
  1. OPIOIDS [Concomitant]
     Active Substance: UNSPECIFIED INGREDIENT
     Indication: INTERVERTEBRAL DISC PROTRUSION
  2. ALPRAZOLAM IR TABLETS [Suspect]
     Active Substance: ALPRAZOLAM
     Indication: INSOMNIA
     Dosage: MAXIMUM RECOMMENDED DOSE OF 2 MG AT BEDTIME.
     Route: 065
  3. ALPRAZOLAM IR TABLETS [Suspect]
     Active Substance: ALPRAZOLAM
     Indication: ANXIETY
     Dosage: UP TO 3 MG DAILY FOR MANY MONTHS.
     Route: 065
  4. OPIOIDS [Concomitant]
     Active Substance: UNSPECIFIED INGREDIENT
     Indication: SCOLIOSIS

REACTIONS (2)
  - Catatonia [Recovered/Resolved]
  - Withdrawal syndrome [Recovered/Resolved]
